FAERS Safety Report 4460397-3 (Version None)
Quarter: 2004Q3

REPORT INFORMATION
  Report Type: 
  Country: None (occurrence: None)
  Receive Date: 20040928
  Receipt Date: 20040513
  Transmission Date: 20050211
  Serious: No
  Sender: FDA-Public Use
  Company Number: US-GLAXOSMITHKLINE-A0510767A

PATIENT
  Age: 70 Year
  Sex: Male

DRUGS (6)
  1. SEREVENT [Suspect]
     Indication: ASTHMA
     Dosage: 1PUFF PER DAY
     Route: 055
     Dates: start: 20031001
  2. SEREVENT [Concomitant]
     Dosage: 2PUFF TWICE PER DAY
     Route: 055
     Dates: start: 19960101
  3. PRILOSEC [Concomitant]
  4. AZMACORT [Concomitant]
  5. FLOMAX [Concomitant]
  6. BENICAR [Concomitant]

REACTIONS (1)
  - PALPITATIONS [None]
